FAERS Safety Report 23161532 (Version 1)
Quarter: 2023Q4

REPORT INFORMATION
  Report Type: Report from Study
  Country: IN (occurrence: IN)
  Receive Date: 20231108
  Receipt Date: 20231108
  Transmission Date: 20240110
  Serious: Yes (Other)
  Sender: FDA-Public Use
  Company Number: IN-BAYER-2023A155170

PATIENT
  Age: 67 Year
  Sex: Female
  Weight: 82 kg

DRUGS (10)
  1. RIVAROXABAN [Suspect]
     Active Substance: RIVAROXABAN
     Indication: Atrial fibrillation
     Dosage: 20 MG, QD
     Route: 048
     Dates: start: 20220720
  2. ROZUCOR ASP [Concomitant]
     Indication: Ischaemic heart disease prophylaxis
     Dosage: 20 MG, QD
     Route: 048
     Dates: start: 20221027
  3. ROZUCOR ASP [Concomitant]
     Indication: Cerebrovascular accident
  4. ROZUCOR ASP [Concomitant]
     Indication: Angina pectoris
  5. OLMEZEST [Concomitant]
     Indication: Hypertension
     Dosage: 40 MG, QD
     Route: 048
     Dates: start: 20220720
  6. GLYREE M2 [Concomitant]
     Indication: Type 2 diabetes mellitus
     Dosage: 2 MG, QD
     Route: 048
     Dates: start: 20220720
  7. DILTIAZEM [Concomitant]
     Active Substance: DILTIAZEM
     Indication: Chest pain
     Dosage: 90 MG, TID
     Route: 048
     Dates: start: 20221027
  8. DILTIAZEM [Concomitant]
     Active Substance: DILTIAZEM
     Indication: Arrhythmia
  9. DYNAGLIPT M [Concomitant]
     Indication: Type 2 diabetes mellitus
     Dosage: 20 MG, BID
     Route: 048
     Dates: start: 20221027
  10. NUROKIND PLUS [FOLIC ACID;MECOBALAMIN;PYRIDOXINE HYDROCHLORIDE;THIAMIN [Concomitant]
     Indication: Vitamin supplementation
     Dosage: UNK UNK, QD
     Route: 048
     Dates: start: 20221027

REACTIONS (2)
  - Atrial fibrillation [Recovered/Resolved]
  - Hypertension [Recovered/Resolved]

NARRATIVE: CASE EVENT DATE: 20221027
